FAERS Safety Report 18635383 (Version 1)
Quarter: 2020Q4

REPORT INFORMATION
  Report Type: Report from Study
  Country: US (occurrence: US)
  Receive Date: 20201218
  Receipt Date: 20201218
  Transmission Date: 20210114
  Serious: Yes (Other)
  Sender: FDA-Public Use
  Company Number: NVSC2020US329505

PATIENT
  Sex: Female

DRUGS (2)
  1. COSENTYX [Suspect]
     Active Substance: SECUKINUMAB
     Dosage: 150 MG, Q2W (EVERY OTHER WEEK)
     Route: 058
  2. COSENTYX [Suspect]
     Active Substance: SECUKINUMAB
     Indication: ANKYLOSING SPONDYLITIS
     Dosage: UNK
     Route: 058

REACTIONS (5)
  - Ankylosing spondylitis [Unknown]
  - Arthritis [Not Recovered/Not Resolved]
  - Inappropriate schedule of product administration [Unknown]
  - Product prescribing error [Unknown]
  - Therapeutic product effect incomplete [Unknown]
